FAERS Safety Report 5454670-X (Version None)
Quarter: 2007Q3

REPORT INFORMATION
  Report Type: 
  Country: None (occurrence: None)
  Receive Date: 20070917
  Receipt Date: 20060817
  Transmission Date: 20080115
  Serious: No
  Sender: FDA-Public Use
  Company Number: US-ASTRAZENECA-2006UW16414

PATIENT
  Age: 30 Year
  Sex: Female
  Weight: 58.1 kg

DRUGS (2)
  1. SEROQUEL [Suspect]
     Indication: BIPOLAR II DISORDER
     Route: 048
  2. PROZAC [Concomitant]

REACTIONS (4)
  - EYE DISORDER [None]
  - EYE IRRITATION [None]
  - HEADACHE [None]
  - VISUAL ACUITY REDUCED [None]
